FAERS Safety Report 15375011 (Version 1)
Quarter: 2018Q3

REPORT INFORMATION
  Report Type: Spontaneous
  Country: US (occurrence: US)
  Receive Date: 20180912
  Receipt Date: 20180912
  Transmission Date: 20181010
  Serious: No
  Sender: FDA-Public Use
  Company Number: US-LUNDBECK-DKLU2052210

PATIENT
  Age: 22 Year
  Sex: Female

DRUGS (4)
  1. NORTHERA [Suspect]
     Active Substance: DROXIDOPA
     Indication: DIZZINESS
     Dosage: SCHEDULE B / TITRATING
     Route: 048
  2. NORTHERA [Suspect]
     Active Substance: DROXIDOPA
     Indication: ORTHOSTATIC HYPOTENSION
  3. NORTHERA [Suspect]
     Active Substance: DROXIDOPA
     Indication: SYNCOPE
  4. NORTHERA [Suspect]
     Active Substance: DROXIDOPA
     Indication: AUTONOMIC NEUROPATHY
     Dosage: SCHEDULE B / TITRATING
     Route: 048
     Dates: start: 20180720

REACTIONS (10)
  - Insomnia [Unknown]
  - Heart rate increased [Unknown]
  - Dizziness [Unknown]
  - Disorientation [Unknown]
  - Blood pressure fluctuation [Unknown]
  - Auditory disorder [Unknown]
  - Vision blurred [Unknown]
  - Emotional distress [Unknown]
  - Hypotension [Unknown]
  - Fatigue [Unknown]

NARRATIVE: CASE EVENT DATE: 20180725
